FAERS Safety Report 5612770-5 (Version None)
Quarter: 2008Q1

REPORT INFORMATION
  Report Type: 
  Country: None (occurrence: None)
  Receive Date: 20080204
  Receipt Date: 20080129
  Transmission Date: 20080703
  Serious: Yes (Hospitalization, Disabling)
  Sender: FDA-Public Use
  Company Number: US-WYE-H02362608

PATIENT
  Sex: Female

DRUGS (1)
  1. EFFEXOR [Suspect]

REACTIONS (5)
  - CEREBROVASCULAR ACCIDENT [None]
  - HYPERTENSION [None]
  - INJURY [None]
  - RENAL IMPAIRMENT [None]
  - VISUAL DISTURBANCE [None]
